FAERS Safety Report 7298948-6 (Version None)
Quarter: 2011Q1

REPORT INFORMATION
  Report Type: 
  Country: None (occurrence: None)
  Receive Date: 20110217
  Receipt Date: 20110215
  Transmission Date: 20110831
  Serious: Yes (Other)
  Sender: FDA-Public Use
  Company Number: US-PFIZER INC-2011034240

PATIENT
  Sex: Female
  Weight: 22.676 kg

DRUGS (1)
  1. ADVIL [Suspect]
     Indication: PYREXIA
     Dosage: UNK
     Route: 048
     Dates: start: 20110209, end: 20110209

REACTIONS (3)
  - SWELLING FACE [None]
  - BLISTER [None]
  - LIP SWELLING [None]
